FAERS Safety Report 18612683 (Version 3)
Quarter: 2021Q2

REPORT INFORMATION
  Report Type: Spontaneous
  Country: US (occurrence: US)
  Receive Date: 20201214
  Receipt Date: 20210409
  Transmission Date: 20210717
  Serious: No
  Sender: FDA-Public Use
  Company Number: US-PFIZER INC-2020490340

PATIENT
  Age: 46 Year
  Sex: Female

DRUGS (5)
  1. METHOTREXATE. [Concomitant]
     Active Substance: METHOTREXATE
     Dosage: UNK
  2. HYDROXYCHLOROQUINE [Concomitant]
     Active Substance: HYDROXYCHLOROQUINE
     Dosage: UNK
  3. XELJANZ XR [Suspect]
     Active Substance: TOFACITINIB CITRATE
     Indication: RHEUMATOID ARTHRITIS
     Dosage: 11 MG, 1X/DAY
     Route: 048
     Dates: start: 202011, end: 202012
  4. PREDNISONE. [Concomitant]
     Active Substance: PREDNISONE
     Dosage: UNK
  5. FOLIC [Concomitant]
     Active Substance: FOLIC ACID
     Dosage: UNK

REACTIONS (6)
  - Eye swelling [Unknown]
  - Product dose omission issue [Unknown]
  - Eye pain [Unknown]
  - Impaired driving ability [Unknown]
  - Illness [Unknown]
  - Visual impairment [Unknown]

NARRATIVE: CASE EVENT DATE: 20201208
